FAERS Safety Report 4375034-6 (Version None)
Quarter: 2004Q2

REPORT INFORMATION
  Report Type: 
  Country: None (occurrence: None)
  Receive Date: 20040604
  Receipt Date: 20040525
  Transmission Date: 20050107
  Serious: Yes (Hospitalization)
  Sender: FDA-Public Use
  Company Number: HQWYE124227MAY04

PATIENT
  Sex: Male

DRUGS (2)
  1. ADVIL [Suspect]
     Dosage: 1 TABLET; ORAL
     Route: 048
  2. ZITHROMAX [Suspect]
     Dosage: UNKNOWN

REACTIONS (1)
  - CHOLANGITIS [None]
